FAERS Safety Report 10885958 (Version 1)
Quarter: 2015Q1

REPORT INFORMATION
  Report Type: Spontaneous
  Country: US (occurrence: None)
  Receive Date: 20150302
  Receipt Date: 20150302
  Transmission Date: 20150721
  Serious: Yes (Hospitalization)
  Sender: FDA-Public Use
  Company Number: SP09106

PATIENT
  Age: 55 Year
  Sex: Female
  Weight: 96.62 kg

DRUGS (7)
  1. POTASSIUM [Concomitant]
     Active Substance: POTASSIUM
  2. XIFAXAN [Suspect]
     Active Substance: RIFAXIMIN
     Indication: HEPATITIS C
     Dosage: (550 MG, 2 IN 1 D)
     Route: 048
     Dates: start: 201402
  3. PROPRANOLOL [Concomitant]
     Active Substance: PROPRANOLOL\PROPRANOLOL HYDROCHLORIDE
  4. SPIRONOLACTONE. [Concomitant]
     Active Substance: SPIRONOLACTONE
  5. XIFAXAN [Suspect]
     Active Substance: RIFAXIMIN
     Indication: HEPATIC ENCEPHALOPATHY
     Dosage: (550 MG, 2 IN 1 D)
     Route: 048
     Dates: start: 201402
  6. LACTULOSE. [Concomitant]
     Active Substance: LACTULOSE
  7. OMEPRAZOLE. [Concomitant]
     Active Substance: OMEPRAZOLE

REACTIONS (3)
  - Balance disorder [None]
  - Lower limb fracture [None]
  - Fall [None]

NARRATIVE: CASE EVENT DATE: 20140913
